FAERS Safety Report 7499649-1 (Version None)
Quarter: 2011Q2

REPORT INFORMATION
  Report Type: 
  Country: None (occurrence: None)
  Receive Date: 20110524
  Receipt Date: 20110208
  Transmission Date: 20111010
  Serious: No
  Sender: FDA-Public Use
  Company Number: US-NOVEN-11US001749

PATIENT
  Sex: Male
  Weight: 21.315 kg

DRUGS (5)
  1. DAYTRANA [Suspect]
     Indication: PRODUCT USED FOR UNKNOWN INDICATION
     Dosage: 15 MG, QD
     Route: 062
     Dates: start: 20110128
  2. PREDNISONE [Concomitant]
     Indication: ASTHMA
     Dosage: 30 MG, QD
     Route: 048
     Dates: start: 20110206, end: 20110211
  3. SINGULAIR [Concomitant]
     Indication: ASTHMA
     Dosage: 5 MG, UNK
     Route: 048
     Dates: start: 20070101
  4. CYPROHEPTADINE HCL [Concomitant]
     Indication: ASTHMA
     Dosage: 8 MG, UNK
     Route: 048
     Dates: start: 20100701
  5. ZYPREXA [Concomitant]
     Indication: INSOMNIA
     Dosage: 2.5 MG, UNK
     Route: 048
     Dates: start: 20101001

REACTIONS (2)
  - DRUG INEFFECTIVE [None]
  - PRODUCT QUALITY ISSUE [None]
